FAERS Safety Report 5133136-0 (Version None)
Quarter: 2006Q4

REPORT INFORMATION
  Report Type: 
  Country: None (occurrence: None)
  Receive Date: 20061017
  Receipt Date: 20061010
  Transmission Date: 20070319
  Serious: Yes (Other)
  Sender: FDA-Public Use
  Company Number: GBWYE181210OCT06

PATIENT
  Sex: Female

DRUGS (1)
  1. EFFEXOR [Suspect]
     Dosage: ORAL
     Route: 048
     Dates: start: 20020101

REACTIONS (4)
  - ANAEMIA [None]
  - BONE MARROW DISORDER [None]
  - CEREBROVASCULAR ACCIDENT [None]
  - RESPIRATORY DISORDER [None]
